FAERS Safety Report 13469095 (Version 1)
Quarter: 2017Q2

REPORT INFORMATION
  Report Type: Spontaneous
  Country: FR (occurrence: FR)
  Receive Date: 20170421
  Receipt Date: 20170421
  Transmission Date: 20170830
  Serious: Yes (Hospitalization)
  Sender: FDA-Public Use
  Company Number: FR-PFIZER INC-2017171771

PATIENT
  Age: 80 Year
  Sex: Female

DRUGS (8)
  1. LORAMYC [Concomitant]
     Active Substance: MICONAZOLE
     Dosage: UNK
     Dates: end: 20170403
  2. CANDESARTAN. [Concomitant]
     Active Substance: CANDESARTAN
     Dosage: UNK
     Dates: end: 20170403
  3. ZYVOXID [Suspect]
     Active Substance: LINEZOLID
     Indication: STAPHYLOCOCCAL SEPSIS
     Dosage: UNK
     Dates: start: 20170329, end: 20170405
  4. NOXAFIL [Suspect]
     Active Substance: POSACONAZOLE
     Indication: FUNGAL INFECTION
     Dosage: UNK
     Dates: start: 20170330, end: 20170405
  5. VISKEN [Concomitant]
     Active Substance: PINDOLOL
     Dosage: UNK
     Dates: end: 20170403
  6. ZYVOXID [Suspect]
     Active Substance: LINEZOLID
     Indication: FEBRILE NEUTROPENIA
  7. NOXAFIL [Suspect]
     Active Substance: POSACONAZOLE
     Indication: FEBRILE NEUTROPENIA
  8. ZOCOR [Concomitant]
     Active Substance: SIMVASTATIN
     Dosage: UNK
     Dates: end: 20170403

REACTIONS (1)
  - Pharyngeal oedema [Recovering/Resolving]

NARRATIVE: CASE EVENT DATE: 20170405
